FAERS Safety Report 20219137 (Version 5)
Quarter: 2022Q2

REPORT INFORMATION
  Report Type: Report from Study
  Country: PR (occurrence: PR)
  Receive Date: 20211222
  Receipt Date: 20220421
  Transmission Date: 20220721
  Serious: Yes (Hospitalization)
  Sender: FDA-Public Use
  Company Number: PR-PFIZER INC-202101794074

PATIENT
  Age: 62 Year
  Sex: Female
  Weight: 73.923 kg

DRUGS (17)
  1. IRINOTECAN HYDROCHLORIDE [Suspect]
     Active Substance: IRINOTECAN HYDROCHLORIDE
     Indication: Pancreatic carcinoma
     Dosage: 150 MG/M2,1 IN 2 WK
     Route: 042
     Dates: start: 20210616, end: 20210629
  2. IRINOTECAN HYDROCHLORIDE [Suspect]
     Active Substance: IRINOTECAN HYDROCHLORIDE
     Dosage: 150 MG/M2,1 IN 2 WK
     Route: 042
     Dates: start: 20210729, end: 20210729
  3. IRINOTECAN HYDROCHLORIDE [Suspect]
     Active Substance: IRINOTECAN HYDROCHLORIDE
     Dosage: 150 MG/M2,1 IN 2 WK
     Route: 042
     Dates: start: 20211110
  4. OXALIPLATIN [Suspect]
     Active Substance: OXALIPLATIN
     Indication: Pancreatic carcinoma
     Dosage: DAYS 1 AND 15 OF EACH 28-DAY CYCLE (85 MG/M2)
     Route: 042
     Dates: start: 20210616, end: 20210629
  5. OXALIPLATIN [Suspect]
     Active Substance: OXALIPLATIN
     Dosage: DAYS 1 AND 15 OF EACH 28-DAY CYCLE (85 MG/M2)
     Route: 042
     Dates: start: 20210729, end: 20210729
  6. OXALIPLATIN [Suspect]
     Active Substance: OXALIPLATIN
     Dosage: DAYS 1 AND 15 OF EACH 28-DAY CYCLE (85 MG/M2)
     Route: 042
     Dates: start: 20210816
  7. LEUCOVORIN [Suspect]
     Active Substance: LEUCOVORIN
     Indication: Pancreatic carcinoma
     Dosage: DAYS 1 AND 15 OF EACH 28-DAY CYCLE (400 MG/M2, 1 IN 2 WK)
     Route: 042
     Dates: start: 20210616, end: 20210629
  8. LEUCOVORIN [Suspect]
     Active Substance: LEUCOVORIN
     Dosage: DAYS 1 AND 15 OF EACH 28-DAY CYCLE (400 MG/M2, 1 IN 2 WK)
     Route: 042
     Dates: start: 20210729, end: 20210729
  9. LEUCOVORIN [Suspect]
     Active Substance: LEUCOVORIN
     Dosage: DAYS 1 AND 15 OF EACH 28-DAY CYCLE (400 MG/M2, 1 IN 2 WK)
     Route: 042
     Dates: start: 20210816
  10. FLUOROURACIL [Suspect]
     Active Substance: FLUOROURACIL
     Indication: Pancreatic carcinoma
     Dosage: 48 HOUR CONTINUOUS INFUSION STARTING ON DAYS 1 AND 15 OF EACH 28-DAY CYCLE (2400 MG/M2)
     Route: 042
     Dates: start: 20210616
  11. BUDIGALIMAB [Suspect]
     Active Substance: BUDIGALIMAB
     Indication: Pancreatic carcinoma
     Dosage: 500 MG, 1 IN 4 WK
     Route: 042
     Dates: start: 20210618, end: 20210618
  12. GILORALIMAB [Suspect]
     Active Substance: GILORALIMAB
     Indication: Pancreatic carcinoma
     Dosage: 0.1 MG/KG,1 IN 4 WK
     Route: 042
     Dates: start: 20210618, end: 20210618
  13. JARDIANCE [Concomitant]
     Active Substance: EMPAGLIFLOZIN
     Indication: Diabetes mellitus
     Dosage: 25 MG, 1 IN 1 D
     Route: 048
     Dates: start: 202107
  14. GLIMEPIRIDE [Concomitant]
     Active Substance: GLIMEPIRIDE
     Indication: Diabetes mellitus
     Dosage: 4 MG, 1 IN 24HR
     Route: 048
     Dates: start: 201107
  15. METOPROLOL SUCCINATE [Concomitant]
     Active Substance: METOPROLOL SUCCINATE
     Indication: Hypertension
     Dosage: 25 MG, 1 IN 1 D
     Route: 048
     Dates: start: 201107
  16. LISINOPRIL [Concomitant]
     Active Substance: LISINOPRIL
     Indication: Hypertension
     Dosage: 1 IN 24HR
     Route: 048
     Dates: start: 201107
  17. PANTOPRAZOLE SODIUM [Concomitant]
     Active Substance: PANTOPRAZOLE SODIUM
     Indication: Gastrooesophageal reflux disease
     Dosage: 40 MG, 1 IN 24HR
     Route: 048
     Dates: start: 201107

REACTIONS (4)
  - Immune-mediated hepatitis [Recovered/Resolved]
  - Anaemia [Recovered/Resolved with Sequelae]
  - Dehydration [Recovered/Resolved]
  - Anaemia [Recovered/Resolved with Sequelae]

NARRATIVE: CASE EVENT DATE: 20210708
